FAERS Safety Report 9670049 (Version 1)
Quarter: 2013Q4

REPORT INFORMATION
  Report Type: Report from Study
  Country: US (occurrence: US)
  Receive Date: 20131105
  Receipt Date: 20131105
  Transmission Date: 20140711
  Serious: Yes (Hospitalization)
  Sender: FDA-Public Use
  Company Number: US-PURDUE-USA-2013-0108092

PATIENT
  Sex: Female

DRUGS (3)
  1. OXYCONTIN (NDA 22-272) [Suspect]
     Indication: BACK PAIN
     Dosage: 40 MG, BID
     Route: 048
  2. OXYCONTIN (NDA 22-272) [Suspect]
     Indication: FIBROMYALGIA
  3. OXYCONTIN (NDA 22-272) [Suspect]
     Indication: ARTHRITIS

REACTIONS (1)
  - Myocardial infarction [Recovered/Resolved]
